FAERS Safety Report 11359499 (Version 1)
Quarter: 2015Q3

REPORT INFORMATION
  Report Type: Spontaneous
  Country: US (occurrence: None)
  Receive Date: 20150807
  Receipt Date: 20150807
  Transmission Date: 20151125
  Serious: No
  Sender: FDA-Public Use
  Company Number: None

PATIENT
  Age: 81 Year
  Sex: Female

DRUGS (7)
  1. OCUVITE [Concomitant]
     Active Substance: VITAMINS
  2. D3 [Concomitant]
     Active Substance: 25-HYDROXYCHOLECALCIFEROL, 5-TRANS-
  3. CENTRUM SILVER [Concomitant]
     Active Substance: VITAMINS
  4. OSTEO-PLEX [Concomitant]
  5. LEVOFLOXACIN 300MG - 500MG [Suspect]
     Active Substance: LEVOFLOXACIN
     Indication: GASTRIC INFECTION
     Route: 048
     Dates: start: 20140417, end: 20140428
  6. PREDNISONE. [Suspect]
     Active Substance: PREDNISONE
  7. CALTRATE WITH VITAMIN D [Concomitant]
     Active Substance: CALCIUM CARBONATE\VITAMIN D

REACTIONS (11)
  - Pain in extremity [None]
  - Musculoskeletal pain [None]
  - Burning sensation [None]
  - Movement disorder [None]
  - Heart rate irregular [None]
  - Arthralgia [None]
  - Nervous system disorder [None]
  - Erythema [None]
  - Feeling hot [None]
  - Tendon disorder [None]
  - Swelling [None]

NARRATIVE: CASE EVENT DATE: 201404
